FAERS Safety Report 8297958-X (Version None)
Quarter: 2012Q2

REPORT INFORMATION
  Report Type: 
  Country: None (occurrence: None)
  Receive Date: 20120419
  Receipt Date: 20120411
  Transmission Date: 20120825
  Serious: Yes (Life-Threatening, Hospitalization)
  Sender: FDA-Public Use
  Company Number: JP-ASTRAZENECA-2012SE22816

PATIENT
  Age: 80 Year
  Sex: Male

DRUGS (10)
  1. GRAMALIL [Suspect]
     Indication: DEMENTIA
     Route: 048
     Dates: start: 20120208, end: 20120325
  2. HALCION [Concomitant]
     Route: 048
     Dates: start: 20120126, end: 20120207
  3. ROHYPNOL [Concomitant]
     Indication: DEMENTIA
     Route: 048
     Dates: start: 20120208, end: 20120324
  4. ALPRAZOLAM [Concomitant]
     Indication: INSOMNIA
     Route: 048
     Dates: start: 20120126, end: 20120324
  5. URIEF [Concomitant]
     Indication: BENIGN PROSTATIC HYPERPLASIA
     Route: 048
     Dates: start: 20091005, end: 20120325
  6. ALPRAZOLAM [Concomitant]
     Indication: DEMENTIA
     Route: 048
     Dates: start: 20120126, end: 20120324
  7. ARICEPT [Concomitant]
     Indication: DEMENTIA
     Route: 048
     Dates: start: 20120127, end: 20120325
  8. SEROQUEL [Suspect]
     Indication: DEMENTIA
     Route: 048
     Dates: start: 20120302, end: 20120320
  9. SEROQUEL [Suspect]
     Route: 048
     Dates: start: 20120321, end: 20120324
  10. ROHYPNOL [Concomitant]
     Indication: INSOMNIA
     Route: 048
     Dates: start: 20120208, end: 20120324

REACTIONS (4)
  - RENAL IMPAIRMENT [None]
  - HEPATIC FUNCTION ABNORMAL [None]
  - NEUROLEPTIC MALIGNANT SYNDROME [None]
  - OFF LABEL USE [None]
